FAERS Safety Report 11828028 (Version 2)
Quarter: 2017Q1

REPORT INFORMATION
  Report Type: Spontaneous
  Country: US (occurrence: US)
  Receive Date: 20151211
  Receipt Date: 20170323
  Transmission Date: 20170428
  Serious: Yes (Other)
  Sender: FDA-Public Use
  Company Number: US-ELI_LILLY_AND_COMPANY-US201512000743

PATIENT
  Sex: Female

DRUGS (6)
  1. CYMBALTA [Suspect]
     Active Substance: DULOXETINE HYDROCHLORIDE
     Indication: DEPRESSION
     Dosage: 60 MG, QD
     Route: 048
  2. KLONOPIN [Concomitant]
     Active Substance: CLONAZEPAM
     Indication: SLEEP DISORDER
  3. TRAZODONE [Concomitant]
     Active Substance: TRAZODONE HYDROCHLORIDE
     Indication: SLEEP DISORDER
     Dosage: UNK, UNKNOWN
  4. CYMBALTA [Suspect]
     Active Substance: DULOXETINE HYDROCHLORIDE
     Dosage: 30 MG, QID
  5. CYMBALTA [Suspect]
     Active Substance: DULOXETINE HYDROCHLORIDE
     Indication: FIBROMYALGIA
     Dosage: 120 MG, QD
     Route: 048
  6. CYMBALTA [Suspect]
     Active Substance: DULOXETINE HYDROCHLORIDE
     Indication: PAIN
     Dosage: UNK, UNKNOWN
     Route: 048

REACTIONS (30)
  - Paraesthesia [Unknown]
  - Drug withdrawal syndrome [Unknown]
  - Cold sweat [Unknown]
  - Nausea [Unknown]
  - Fear [Unknown]
  - Affect lability [Unknown]
  - Diarrhoea [Unknown]
  - Headache [Unknown]
  - Tinnitus [Unknown]
  - Confusional state [Unknown]
  - Sensory disturbance [Unknown]
  - Aggression [Unknown]
  - Rash [Unknown]
  - Hyperhidrosis [Unknown]
  - Anger [Unknown]
  - Dizziness [Unknown]
  - Neuropathy peripheral [Unknown]
  - Hypomania [Unknown]
  - Tremor [Unknown]
  - Nightmare [Unknown]
  - Fatigue [Unknown]
  - Irritability [Unknown]
  - Insomnia [Unknown]
  - Dysphoria [Unknown]
  - Vomiting [Unknown]
  - Influenza like illness [Unknown]
  - Agitation [Unknown]
  - Suicidal ideation [Unknown]
  - Sleep disorder [Unknown]
  - Anxiety [Unknown]
